FAERS Safety Report 8607448 (Version 3)
Quarter: 2014Q2

REPORT INFORMATION
  Report Type: Spontaneous
  Country: US (occurrence: US)
  Receive Date: 20120611
  Receipt Date: 20140401
  Transmission Date: 20141212
  Serious: No
  Sender: FDA-Public Use
  Company Number: US-ASTRAZENECA-2012SE35342

PATIENT
  Sex: 0

DRUGS (8)
  1. NEXIUM [Suspect]
     Route: 048
  2. ROLAIDS [Concomitant]
  3. TUMS [Concomitant]
  4. ALKA SELTZER [Concomitant]
  5. PEPTO BISMOL [Concomitant]
  6. ATIVAN [Concomitant]
     Route: 048
     Dates: start: 20130524
  7. GABAPENTIN [Concomitant]
     Route: 048
     Dates: start: 20130524
  8. ASPIRIN [Concomitant]

REACTIONS (2)
  - Osteoporosis [Unknown]
  - Multiple fractures [Unknown]
